FAERS Safety Report 13349625 (Version 1)
Quarter: 2017Q1

REPORT INFORMATION
  Report Type: Report from Study
  Country: MX (occurrence: MX)
  Receive Date: 20170320
  Receipt Date: 20170320
  Transmission Date: 20170429
  Serious: Yes (Death)
  Sender: FDA-Public Use
  Company Number: PHHY2016MX057902

PATIENT
  Age: 92 Year
  Sex: Male

DRUGS (1)
  1. EXELON PATCH [Suspect]
     Active Substance: RIVASTIGMINE
     Indication: MEMORY IMPAIRMENT
     Dosage: 9.5 MG,(PATCH 10 CM2), QD
     Route: 062

REACTIONS (3)
  - Application site pruritus [Not Recovered/Not Resolved]
  - Application site hypersensitivity [Not Recovered/Not Resolved]
  - Death [Fatal]

NARRATIVE: CASE EVENT DATE: 20170315
